FAERS Safety Report 21088168 (Version 2)
Quarter: 2022Q3

REPORT INFORMATION
  Report Type: Report from Study
  Country: US (occurrence: US)
  Receive Date: 20220715
  Receipt Date: 20220916
  Transmission Date: 20221026
  Serious: Yes (Other)
  Sender: FDA-Public Use
  Company Number: US-ARGENX-2022-ARGX-US001169

PATIENT

DRUGS (1)
  1. EFGARTIGIMOD ALFA-FCAB [Suspect]
     Active Substance: EFGARTIGIMOD ALFA-FCAB
     Indication: Myasthenia gravis
     Dosage: UNK
     Route: 042
     Dates: start: 20220617

REACTIONS (4)
  - Dyspnoea [Not Recovered/Not Resolved]
  - Hypoxia [Unknown]
  - Oxygen therapy [Unknown]
  - Drug effect less than expected [Unknown]
